FAERS Safety Report 6410284-6 (Version None)
Quarter: 2009Q4

REPORT INFORMATION
  Report Type: 
  Country: None (occurrence: None)
  Receive Date: 20091022
  Receipt Date: 20091020
  Transmission Date: 20100525
  Serious: Yes (Death)
  Sender: FDA-Public Use
  Company Number: B0572951A

PATIENT
  Sex: Male
  Weight: 3.2 kg

DRUGS (2)
  1. ZIDOVUDINE [Suspect]
     Dosage: 12MG TWICE PER DAY
     Route: 048
     Dates: start: 20090409
  2. CHLOROMYCETIN [Concomitant]
     Dates: start: 20090416, end: 20090420

REACTIONS (1)
  - SUDDEN INFANT DEATH SYNDROME [None]
